FAERS Safety Report 6570878-4 (Version None)
Quarter: 2010Q1

REPORT INFORMATION
  Report Type: 
  Country: None (occurrence: None)
  Receive Date: 20100204
  Receipt Date: 20100129
  Transmission Date: 20100710
  Serious: Yes (Hospitalization)
  Sender: FDA-Public Use
  Company Number: FR-ROXANE LABORATORIES, INC.-2010-RO-00113RO

PATIENT
  Age: 40 Year
  Sex: Female

DRUGS (10)
  1. LAMOTRIGINE [Suspect]
     Indication: BIPOLAR I DISORDER
     Dosage: 50 MG
  2. LAMOTRIGINE [Suspect]
     Indication: GRAND MAL CONVULSION
     Dosage: 100 MG
  3. PHENOBARBITAL TAB [Suspect]
     Indication: BIPOLAR I DISORDER
     Dosage: 100 MG
  4. PHENOBARBITAL TAB [Suspect]
     Indication: GRAND MAL CONVULSION
     Dosage: 50 MG
  5. CLONAZEPAM [Suspect]
     Indication: BIPOLAR I DISORDER
  6. CLONAZEPAM [Suspect]
     Indication: GRAND MAL CONVULSION
  7. THIOPENTAL SODIUM [Concomitant]
  8. SUCCINYLCHOLINE CHLORIDE [Concomitant]
  9. LEVETIRACETAM [Concomitant]
     Dosage: 1000 MG
  10. CLOBAZAM [Concomitant]
     Dosage: 10 MG

REACTIONS (2)
  - DRUG HYPERSENSITIVITY [None]
  - GRAND MAL CONVULSION [None]
